FAERS Safety Report 6380481-7 (Version None)
Quarter: 2009Q3

REPORT INFORMATION
  Report Type: 
  Country: None (occurrence: None)
  Receive Date: 20090921
  Receipt Date: 20090903
  Transmission Date: 20100115
  Serious: Yes (Death)
  Sender: FDA-Public Use
  Company Number: JP-2009-1959

PATIENT
  Sex: Female

DRUGS (2)
  1. NAVELBINE [Suspect]
     Indication: LUNG NEOPLASM MALIGNANT
     Dosage: 20 MG/M2 IV
     Route: 042
  2. GEMZAR [Suspect]
     Indication: LUNG NEOPLASM MALIGNANT

REACTIONS (1)
  - CEREBRAL INFARCTION [None]
